FAERS Safety Report 15590680 (Version 1)
Quarter: 2018Q4

REPORT INFORMATION
  Report Type: Spontaneous
  Country: US (occurrence: US)
  Receive Date: 20181106
  Receipt Date: 20181106
  Transmission Date: 20190205
  Serious: No
  Sender: FDA-Public Use
  Company Number: US-PFIZER INC-2018431260

PATIENT
  Age: 58 Year

DRUGS (1)
  1. LYRICA [Suspect]
     Active Substance: PREGABALIN
     Indication: HEREDITARY NEUROPATHY WITH LIABILITY TO PRESSURE PALSIES
     Dosage: 75 MG, UNK

REACTIONS (3)
  - Dizziness [Unknown]
  - Insomnia [Unknown]
  - Product use in unapproved indication [Unknown]
